FAERS Safety Report 15811242 (Version 1)
Quarter: 2019Q1

REPORT INFORMATION
  Report Type: Spontaneous
  Country: CA (occurrence: CA)
  Receive Date: 20190111
  Receipt Date: 20190111
  Transmission Date: 20190417
  Serious: Yes (Other)
  Sender: FDA-Public Use
  Company Number: CA-CELLTRION INC.-2019CA017849

PATIENT

DRUGS (4)
  1. INFLECTRA [Suspect]
     Active Substance: INFLIXIMAB-DYYB
     Indication: COLITIS ULCERATIVE
     Dosage: 500 MG (EVERY 0,2,6 WEEKS, THEN EVERY 8 WEEKS);
     Route: 042
     Dates: start: 20181121
  2. SALOFALK                           /00000301/ [Concomitant]
     Active Substance: MESALAMINE
     Dosage: UNK
  3. INFLECTRA [Suspect]
     Active Substance: INFLIXIMAB-DYYB
     Dosage: 500 MG (EVERY 0,2,6 WEEKS, THEN EVERY 8 WEEKS);
     Route: 042
     Dates: start: 20181206
  4. INFLECTRA [Suspect]
     Active Substance: INFLIXIMAB-DYYB
     Dosage: 500 MG (EVERY 0,2,6 WEEKS, THEN EVERY 8 WEEKS);
     Route: 042
     Dates: start: 20190104

REACTIONS (2)
  - Rectal haemorrhage [Unknown]
  - Condition aggravated [Unknown]
